FAERS Safety Report 5193771-0 (Version None)
Quarter: 2006Q4

REPORT INFORMATION
  Report Type: 
  Country: None (occurrence: None)
  Receive Date: 20061228
  Receipt Date: 20061219
  Transmission Date: 20070319
  Serious: Yes (Other)
  Sender: FDA-Public Use
  Company Number: DE-GLAXOSMITHKLINE-D0051843A

PATIENT

DRUGS (5)
  1. QUILONUM RETARD [Suspect]
     Route: 048
  2. VENLAFAXINE HCL [Suspect]
     Route: 048
  3. LORAZEPAM [Suspect]
     Dosage: 20MG PER DAY
     Route: 048
  4. MIRTAZAPINE [Suspect]
     Route: 048
  5. SEROQUEL [Suspect]
     Route: 048

REACTIONS (2)
  - SOMNOLENCE [None]
  - SUICIDE ATTEMPT [None]
